FAERS Safety Report 9001104 (Version 1)
Quarter: 2013Q1

REPORT INFORMATION
  Report Type: Spontaneous
  Country: US (occurrence: None)
  Receive Date: 20121217
  Receipt Date: 20121217
  Transmission Date: 20140127
  Serious: Yes (Congenital Anomaly, Other)
  Sender: FDA-Public Use
  Company Number: US-TORRENT-00000076

PATIENT
  Age: 49 Year
  Sex: Male
  Weight: 83.29 kg

DRUGS (3)
  1. RISPERIDONE [Suspect]
     Indication: SCHIZOPHRENIA
     Dates: start: 20111026, end: 20111111
  2. TRAZODONE [Concomitant]
  3. MOXIFLOXACIN [Concomitant]

REACTIONS (1)
  - Cellulitis [None]
